FAERS Safety Report 12078922 (Version 1)
Quarter: 2016Q1

REPORT INFORMATION
  Report Type: Spontaneous
  Country: US (occurrence: US)
  Receive Date: 20160216
  Receipt Date: 20160216
  Transmission Date: 20160526
  Serious: Yes (Hospitalization, Other)
  Sender: FDA-Public Use
  Company Number: US-ABBVIE-16K-163-1560712-00

PATIENT
  Age: 77 Year
  Sex: Male
  Weight: 71.28 kg

DRUGS (3)
  1. VALIUM [Concomitant]
     Active Substance: DIAZEPAM
     Indication: INSOMNIA
  2. HUMIRA [Suspect]
     Active Substance: ADALIMUMAB
     Indication: RHEUMATOID ARTHRITIS
     Route: 058
     Dates: start: 2011, end: 2013
  3. HUMIRA [Suspect]
     Active Substance: ADALIMUMAB
     Route: 058
     Dates: start: 201501, end: 20160203

REACTIONS (11)
  - Back pain [Recovering/Resolving]
  - Cerebrovascular accident [Recovering/Resolving]
  - Asthenia [Recovered/Resolved]
  - Muscular weakness [Recovering/Resolving]
  - Impaired self-care [Recovering/Resolving]
  - Dysphonia [Recovered/Resolved]
  - Confusional state [Recovered/Resolved]
  - Gait disturbance [Recovering/Resolving]
  - Dysphonia [Recovering/Resolving]
  - Muscular weakness [Recovered/Resolved]
  - Asthenia [Recovering/Resolving]

NARRATIVE: CASE EVENT DATE: 201601
